FAERS Safety Report 5217825-5 (Version None)
Quarter: 2007Q1

REPORT INFORMATION
  Report Type: 
  Country: None (occurrence: None)
  Receive Date: 20070124
  Receipt Date: 20070117
  Transmission Date: 20070707
  Serious: Yes (Hospitalization)
  Sender: FDA-Public Use
  Company Number: JP-BOEHRINGER INGELHEIM PHARMACEUTICALS, INC.-2007-BP-00834NB

PATIENT
  Age: 69 Year
  Sex: Female

DRUGS (2)
  1. MEXITIL [Suspect]
     Indication: PAIN
     Route: 048
  2. THEOPHYLLINE [Suspect]
     Indication: ASTHMA
     Route: 065

REACTIONS (3)
  - ANOREXIA [None]
  - NAUSEA [None]
  - VOMITING [None]
